FAERS Safety Report 8712931 (Version 2)
Quarter: 2012Q4

REPORT INFORMATION
  Report Type: 
  Country: US (occurrence: US)
  Receive Date: 20120808
  Receipt Date: 20120912
  Transmission Date: 20130627
  Serious: Yes (Other)
  Sender: FDA-Public Use
  Company Number: US-NOVOPROD-357103

PATIENT
  Age: 53 Year
  Sex: Male
  Weight: 92.52 kg

DRUGS (6)
  1. VICTOZA [Suspect]
     Indication: DIABETES MELLITUS
     Dosage: UNK
     Route: 058
     Dates: start: 20120716, end: 20120718
  2. METFORMIN                          /00082702/ [Concomitant]
     Indication: DIABETES MELLITUS
     Dosage: 1000mg 4 tabs at night
     Route: 048
  3. ZIAC [Concomitant]
     Indication: HYPERTENSION
     Dosage: 10 mg, qd
     Route: 048
  4. TEKTURNA [Concomitant]
     Indication: HYPERTENSION
     Dosage: 300 mg, qd
     Route: 048
  5. MVI [Concomitant]
     Indication: PRODUCT USED FOR UNKNOWN INDICATION
     Route: 058
  6. FISH OIL [Concomitant]
     Indication: PRODUCT USED FOR UNKNOWN INDICATION
     Route: 048

REACTIONS (2)
  - Syncope [Recovered/Resolved]
  - Visual impairment [Recovered/Resolved]
